FAERS Safety Report 4772438-4 (Version None)
Quarter: 2005Q3

REPORT INFORMATION
  Report Type: 
  Country: None (occurrence: None)
  Receive Date: 20050919
  Receipt Date: 20050908
  Transmission Date: 20060218
  Serious: Yes (Other)
  Sender: FDA-Public Use
  Company Number: PHBS2005FR13222

PATIENT
  Age: 70 Year
  Sex: Male

DRUGS (2)
  1. IMATINIB [Suspect]
     Indication: CHRONIC MYELOID LEUKAEMIA
     Dosage: 400 MG, QD
     Route: 048
  2. IMATINIB [Suspect]
     Dosage: 200 MG, QD
     Route: 048
     Dates: end: 20041201

REACTIONS (16)
  - ABSCESS [None]
  - AUTOANTIBODY POSITIVE [None]
  - EOSINOPHIL COUNT INCREASED [None]
  - FASCIITIS [None]
  - FOLLICULAR MUCINOSIS [None]
  - LICHENOID KERATOSIS [None]
  - LYMPHOCYTE COUNT ABNORMAL [None]
  - LYMPHOPENIA [None]
  - MUSCLE SPASMS [None]
  - MYALGIA [None]
  - MYCOSIS FUNGOIDES [None]
  - PAIN [None]
  - PAIN OF SKIN [None]
  - RASH MACULAR [None]
  - SCLERODERMA [None]
  - SKIN SWELLING [None]
